FAERS Safety Report 8585493-0 (Version None)
Quarter: 2012Q3

REPORT INFORMATION
  Report Type: 
  Country: None (occurrence: None)
  Receive Date: 20120810
  Receipt Date: 20120802
  Transmission Date: 20120928
  Serious: Yes (Hospitalization)
  Sender: FDA-Public Use
  Company Number: NL-AMGEN-NLDSP2012050102

PATIENT
  Age: 50 Year
  Sex: Female

DRUGS (2)
  1. ANTIHYPERTENSIVES [Concomitant]
     Dosage: UNK
  2. ENBREL [Suspect]
     Indication: RHEUMATOID ARTHRITIS
     Dosage: 50 MG, WEEKLY
     Dates: start: 20101014

REACTIONS (5)
  - NASOPHARYNGITIS [None]
  - MUCOUS MEMBRANE DISORDER [None]
  - SWEAT GLAND EXCISION [None]
  - INFECTION [None]
  - CATARACT [None]
